APPROVED DRUG PRODUCT: AMITRIPTYLINE HYDROCHLORIDE
Active Ingredient: AMITRIPTYLINE HYDROCHLORIDE
Strength: 50MG
Dosage Form/Route: TABLET;ORAL
Application: A087616 | Product #001
Applicant: VANGARD LABORATORIES INC DIV MIDWAY MEDICAL CO
Approved: Feb 8, 1982 | RLD: No | RS: No | Type: DISCN